FAERS Safety Report 21250775 (Version 1)
Quarter: 2022Q3

REPORT INFORMATION
  Report Type: Report from Study
  Country: CA (occurrence: CA)
  Receive Date: 20220824
  Receipt Date: 20220824
  Transmission Date: 20221027
  Serious: Yes (Other)
  Sender: FDA-Public Use
  Company Number: CA-GILEAD-2022-0590590

PATIENT
  Sex: Female

DRUGS (6)
  1. SACITUZUMAB GOVITECAN [Suspect]
     Active Substance: SACITUZUMAB GOVITECAN
     Indication: Triple negative breast cancer
     Dosage: 730 MG
     Route: 042
     Dates: start: 20220527, end: 20220623
  2. SACITUZUMAB GOVITECAN [Suspect]
     Active Substance: SACITUZUMAB GOVITECAN
     Dosage: 730 MG, DAY 1,8
     Route: 042
     Dates: start: 20220712, end: 20220719
  3. SACITUZUMAB GOVITECAN [Suspect]
     Active Substance: SACITUZUMAB GOVITECAN
     Dosage: UNK, C4D8
     Route: 042
     Dates: start: 20220823
  4. ASPIRIN [Concomitant]
     Active Substance: ASPIRIN
  5. TAMOXIFEN [Concomitant]
     Active Substance: TAMOXIFEN
  6. CAPECITABINE [Concomitant]
     Active Substance: CAPECITABINE

REACTIONS (2)
  - Disease progression [Not Recovered/Not Resolved]
  - COVID-19 [Unknown]
